FAERS Safety Report 19303324 (Version 1)
Quarter: 2021Q2

REPORT INFORMATION
  Report Type: Spontaneous
  Country: US (occurrence: US)
  Receive Date: 20210525
  Receipt Date: 20210525
  Transmission Date: 20210717
  Serious: No
  Sender: FDA-Public Use
  Company Number: US-009507513-2105USA004918

PATIENT
  Age: 17 Month
  Sex: Female

DRUGS (6)
  1. ZOLINZA [Suspect]
     Active Substance: VORINOSTAT
     Indication: ACUTE MEGAKARYOCYTIC LEUKAEMIA
     Dosage: UNK
  2. GEMTUZUMAB OZOGAMICIN [Concomitant]
     Active Substance: GEMTUZUMAB OZOGAMICIN
     Indication: ACUTE MEGAKARYOCYTIC LEUKAEMIA
     Dosage: UNK
  3. DECITABINE. [Concomitant]
     Active Substance: DECITABINE
     Indication: ACUTE MEGAKARYOCYTIC LEUKAEMIA
     Dosage: UNK
  4. FLUDARABINE [Concomitant]
     Active Substance: FLUDARABINE PHOSPHATE
     Indication: ACUTE MEGAKARYOCYTIC LEUKAEMIA
     Dosage: UNK
  5. IDARUBICIN [Concomitant]
     Active Substance: IDARUBICIN
     Indication: ACUTE MEGAKARYOCYTIC LEUKAEMIA
     Dosage: UNK
  6. CYTARABINE. [Concomitant]
     Active Substance: CYTARABINE
     Indication: ACUTE MEGAKARYOCYTIC LEUKAEMIA
     Dosage: UNK

REACTIONS (1)
  - Off label use [Unknown]
